FAERS Safety Report 7820829-7 (Version None)
Quarter: 2011Q4

REPORT INFORMATION
  Report Type: 
  Country: None (occurrence: None)
  Receive Date: 20111018
  Receipt Date: 20111005
  Transmission Date: 20120403
  Serious: Yes (Other)
  Sender: FDA-Public Use
  Company Number: US-ELI_LILLY_AND_COMPANY-US200702005763

PATIENT
  Age: 68 Year
  Sex: Female

DRUGS (5)
  1. HUMULIN R [Suspect]
     Dosage: UNK UNK, PRN
  2. HUMULIN R [Suspect]
     Indication: TYPE 1 DIABETES MELLITUS
     Dosage: 2 U, EACH MORNING
  3. ILETIN [Suspect]
     Indication: DIABETES MELLITUS
  4. HUMULIN N [Suspect]
     Dosage: UNK UNK, PRN
  5. HUMULIN N [Suspect]
     Indication: TYPE 1 DIABETES MELLITUS
     Dosage: 18 U, EACH MORNING

REACTIONS (5)
  - BLOOD GLUCOSE DECREASED [None]
  - BLOOD GLUCOSE INCREASED [None]
  - BREAST CANCER [None]
  - CARDIAC OPERATION [None]
  - EYE OPERATION [None]
